FAERS Safety Report 6438589-3 (Version None)
Quarter: 2009Q4

REPORT INFORMATION
  Report Type: 
  Country: None (occurrence: None)
  Receive Date: 20091110
  Receipt Date: 20091026
  Transmission Date: 20100525
  Serious: Yes (Hospitalization, Other)
  Sender: FDA-Public Use
  Company Number: 2009AC000269

PATIENT
  Age: 53 Year
  Sex: Female

DRUGS (22)
  1. DIGOXIN [Suspect]
     Indication: CARDIAC FAILURE CONGESTIVE
     Dosage: 0.125 MG; QD; PO
     Route: 048
     Dates: start: 20040501
  2. LEVAQUIN [Concomitant]
  3. METOPROLOL TARTRATE [Concomitant]
  4. LASIX [Concomitant]
  5. SIMVASTATIN [Concomitant]
  6. MONOPRIL [Concomitant]
  7. FERROUS SULFATE TAB [Concomitant]
  8. SYNTHROID [Concomitant]
  9. HYZAAR [Concomitant]
  10. CLONIDINE [Concomitant]
  11. GEMFIBROZIL [Concomitant]
  12. AVANDIA [Concomitant]
  13. DYNACIRIC [Concomitant]
  14. LANTUS [Concomitant]
  15. LISINOPRIL [Concomitant]
  16. GEMFIBROZIL [Concomitant]
  17. XENICAL [Concomitant]
  18. GLUCOPHAGE [Concomitant]
  19. GLYBURIDE [Concomitant]
  20. SYNTHROID [Concomitant]
  21. HYDROCHLOROTHIAZIDE [Concomitant]
  22. ASPIRIN [Concomitant]

REACTIONS (15)
  - ABDOMINAL PAIN [None]
  - ABDOMINAL PAIN UPPER [None]
  - CATARACT CORTICAL [None]
  - COMPUTERISED TOMOGRAM ABNORMAL [None]
  - DIARRHOEA [None]
  - ECONOMIC PROBLEM [None]
  - FLANK PAIN [None]
  - HEADACHE [None]
  - IMPAIRED WORK ABILITY [None]
  - IRON DEFICIENCY ANAEMIA [None]
  - LOBAR PNEUMONIA [None]
  - MULTIPLE INJURIES [None]
  - OEDEMA PERIPHERAL [None]
  - STRESS URINARY INCONTINENCE [None]
  - VISUAL ACUITY REDUCED [None]
